FAERS Safety Report 7145338-2 (Version None)
Quarter: 2010Q4

REPORT INFORMATION
  Report Type: 
  Country: None (occurrence: None)
  Receive Date: 20101208
  Receipt Date: 20101202
  Transmission Date: 20110411
  Serious: Yes (Other)
  Sender: FDA-Public Use
  Company Number: US-PFIZER INC-2010163198

PATIENT
  Sex: Male
  Weight: 108.39 kg

DRUGS (11)
  1. CELEBREX [Suspect]
     Indication: ARTHROSCOPIC SURGERY
     Dosage: UNK
     Route: 048
     Dates: start: 20000101, end: 20100701
  2. CELEBREX [Suspect]
     Indication: ARTHRITIS
  3. CELEBREX [Suspect]
     Indication: SPONDYLITIS
  4. CELEBREX [Suspect]
  5. WARFARIN [Concomitant]
     Indication: ANTICOAGULANT THERAPY
     Dosage: 7.5 MG, 1X/DAY
     Route: 048
  6. METOPROLOL [Concomitant]
     Indication: CORONARY ARTERY DISEASE
     Dosage: 50 MG, 1X/DAY
     Route: 048
  7. BENICAR [Concomitant]
     Indication: CORONARY ARTERY DISEASE
     Dosage: 20 MG, 1X/DAY
     Route: 048
  8. LIPITOR [Concomitant]
     Indication: CORONARY ARTERY DISEASE
     Dosage: 10 MG, UNK
     Route: 048
  9. ZETIA [Concomitant]
     Indication: CORONARY ARTERY DISEASE
     Dosage: 10 MG, 1X/DAY
     Route: 048
  10. PREVACID [Concomitant]
     Dosage: 30 MG, 1X/DAY
     Route: 048
  11. ZANTAC [Concomitant]
     Dosage: 150 MG, 1X/DAY
     Route: 048

REACTIONS (1)
  - KNEE ARTHROPLASTY [None]
